FAERS Safety Report 9852685 (Version 4)
Quarter: 2015Q3

REPORT INFORMATION
  Report Type: Spontaneous
  Country: CA (occurrence: CA)
  Receive Date: 20140129
  Receipt Date: 20150715
  Transmission Date: 20151125
  Serious: Yes (Death, Hospitalization)
  Sender: FDA-Public Use
  Company Number: CA-PFIZER INC-2014022561

PATIENT
  Age: 79 Year
  Sex: Male

DRUGS (1)
  1. SUTENT [Suspect]
     Active Substance: SUNITINIB MALATE
     Indication: METASTATIC RENAL CELL CARCINOMA
     Dosage: CYCLIC, 2 WEEKS ON AND 1 WEEK
     Dates: start: 20140116

REACTIONS (4)
  - Death [Fatal]
  - Wound [Unknown]
  - Oral pain [Unknown]
  - Dry mouth [Unknown]

NARRATIVE: CASE EVENT DATE: 201401
